FAERS Safety Report 7965371-8 (Version None)
Quarter: 2011Q4

REPORT INFORMATION
  Report Type: 
  Country: None (occurrence: None)
  Receive Date: 20111208
  Receipt Date: 20111129
  Transmission Date: 20120403
  Serious: Yes (Hospitalization, Other)
  Sender: FDA-Public Use
  Company Number: US-BAYER-2011-043439

PATIENT
  Age: 35 Year
  Sex: Female
  Weight: 107.94 kg

DRUGS (5)
  1. HUMALOG [Concomitant]
     Indication: DIABETES MELLITUS
     Dosage: UNK
     Dates: start: 20090101, end: 20100101
  2. YAZ [Suspect]
     Indication: CONTRACEPTION
     Dosage: UNK
     Dates: start: 20090401, end: 20090601
  3. ACTOS [Concomitant]
     Indication: DIABETES MELLITUS
     Dosage: UNK
     Route: 048
     Dates: start: 20040101, end: 20100101
  4. LORTAB [HYDROCODONE BITARTRATE,PARACETAMOL,PROMETHAZINE HYDROCHLOR [Concomitant]
     Indication: PAIN
     Dosage: UNK
     Dates: start: 20090730
  5. METFORMIN HCL [Concomitant]
     Indication: DIABETES MELLITUS
     Dosage: UNK
     Route: 048
     Dates: start: 20030101, end: 20100101

REACTIONS (8)
  - PULMONARY EMBOLISM [None]
  - GALLBLADDER DISORDER [None]
  - PAIN [None]
  - EMOTIONAL DISTRESS [None]
  - ANXIETY [None]
  - PSYCHOLOGICAL TRAUMA [None]
  - DEEP VEIN THROMBOSIS [None]
  - CHOLELITHIASIS [None]
